FAERS Safety Report 9508550 (Version 1)
Quarter: 2013Q1

REPORT INFORMATION
  Report Type: Spontaneous
  Country: US (occurrence: None)
  Receive Date: 20130305
  Receipt Date: 20130305
  Transmission Date: 20140127
  Serious: Yes (Other)
  Sender: FDA-Public Use
  Company Number: 163-21880-12083055

PATIENT
  Age: 65 Year
  Sex: Female

DRUGS (2)
  1. REVLIMID (LENALIDOMIDE) (25 MILLIGRAM, CAPSULES) [Suspect]
     Indication: PLASMA CELL MYELOMA
     Route: 048
     Dates: start: 200706
  2. DEXAMETHASONE (DEXAMETHASONE) [Concomitant]

REACTIONS (5)
  - Weight increased [None]
  - Tooth infection [None]
  - Abdominal pain upper [None]
  - Pruritus [None]
  - Dry throat [None]
